FAERS Safety Report 16723401 (Version 1)
Quarter: 2019Q3

REPORT INFORMATION
  Report Type: Spontaneous
  Country: CA (occurrence: CA)
  Receive Date: 20190821
  Receipt Date: 20190821
  Transmission Date: 20191005
  Serious: Yes (Hospitalization, Other)
  Sender: FDA-Public Use
  Company Number: CA-AUROBINDO-AUR-APL-2019-054039

PATIENT

DRUGS (2)
  1. FOSAMAX [Suspect]
     Active Substance: ALENDRONATE SODIUM
     Indication: PRODUCT USED FOR UNKNOWN INDICATION
     Dosage: 70.0 MILLIGRAM, EVERY WEEK
     Route: 048
  2. ALENDRONIC ACID [Suspect]
     Active Substance: ALENDRONIC ACID
     Indication: PRODUCT USED FOR UNKNOWN INDICATION
     Dosage: 70.0 MILLIGRAM, EVERY WEEK
     Route: 048

REACTIONS (9)
  - Blood 25-hydroxycholecalciferol increased [Recovered/Resolved]
  - Blood creatinine increased [Recovered/Resolved]
  - Blood phosphorus decreased [Recovered/Resolved]
  - Bone disorder [Recovered/Resolved]
  - Femur fracture [Recovered/Resolved]
  - Device failure [Recovered/Resolved]
  - Blood calcium decreased [Recovered/Resolved]
  - Fracture nonunion [Recovered/Resolved]
  - Tibia fracture [Recovered/Resolved]
